FAERS Safety Report 9790167 (Version 1)
Quarter: 2013Q4

REPORT INFORMATION
  Report Type: Spontaneous
  Country: US (occurrence: US)
  Receive Date: 20131231
  Receipt Date: 20131231
  Transmission Date: 20140711
  Serious: No
  Sender: FDA-Public Use
  Company Number: US-JNJFOC-20131217316

PATIENT
  Sex: Female
  Weight: 58.97 kg

DRUGS (10)
  1. INVEGA [Suspect]
     Indication: RELAXATION THERAPY
     Route: 048
  2. INVEGA [Suspect]
     Indication: RELAXATION THERAPY
     Route: 048
     Dates: start: 2013, end: 201312
  3. INVEGA [Suspect]
     Indication: RELAXATION THERAPY
     Route: 048
     Dates: start: 2013, end: 2013
  4. INVEGA [Suspect]
     Indication: PSYCHOMOTOR HYPERACTIVITY
     Route: 048
  5. INVEGA [Suspect]
     Indication: PSYCHOMOTOR HYPERACTIVITY
     Route: 048
     Dates: start: 2013, end: 201312
  6. INVEGA [Suspect]
     Indication: PSYCHOMOTOR HYPERACTIVITY
     Route: 048
     Dates: start: 2013, end: 2013
  7. INVEGA [Suspect]
     Indication: MENTAL RETARDATION
     Route: 048
  8. INVEGA [Suspect]
     Indication: MENTAL RETARDATION
     Route: 048
     Dates: start: 2013, end: 2013
  9. INVEGA [Suspect]
     Indication: MENTAL RETARDATION
     Route: 048
     Dates: start: 2013, end: 201312
  10. VITAMIN [Concomitant]
     Route: 065

REACTIONS (3)
  - Off label use [Not Recovered/Not Resolved]
  - Agitation [Not Recovered/Not Resolved]
  - Rash [Not Recovered/Not Resolved]
